FAERS Safety Report 10520379 (Version 5)
Quarter: 2015Q3

REPORT INFORMATION
  Report Type: Spontaneous
  Country: US (occurrence: US)
  Receive Date: 20141015
  Receipt Date: 20150701
  Transmission Date: 20151125
  Serious: Yes (Hospitalization, Other)
  Sender: FDA-Public Use
  Company Number: US-GLAXOSMITHKLINE-US2014GSK005803

PATIENT
  Sex: Female
  Weight: 57.78 kg

DRUGS (4)
  1. ATIVAN [Concomitant]
     Active Substance: LORAZEPAM
  2. VOTRIENT [Suspect]
     Active Substance: PAZOPANIB HYDROCHLORIDE
     Dosage: 800 MG, 1D
     Route: 048
  3. VOTRIENT [Suspect]
     Active Substance: PAZOPANIB HYDROCHLORIDE
     Indication: LEIOMYOSARCOMA METASTATIC
     Dosage: 800 MG, QD
     Route: 048
     Dates: start: 20140924
  4. VOTRIENT [Suspect]
     Active Substance: PAZOPANIB HYDROCHLORIDE
     Indication: RENAL CANCER
     Dosage: 800 MG, QD
     Route: 048
     Dates: start: 20141218

REACTIONS (19)
  - Weight decreased [Not Recovered/Not Resolved]
  - Headache [Unknown]
  - Hypotension [Not Recovered/Not Resolved]
  - Vertigo [Recovering/Resolving]
  - Anaemia [Not Recovered/Not Resolved]
  - Pancytopenia [Not Recovered/Not Resolved]
  - Performance status decreased [Unknown]
  - Decreased appetite [Not Recovered/Not Resolved]
  - Pain [Not Recovered/Not Resolved]
  - Abdominal pain upper [Recovered/Resolved]
  - Limb injury [Unknown]
  - Thrombocytopenia [Not Recovered/Not Resolved]
  - Hypogeusia [Unknown]
  - Fatigue [Unknown]
  - Constipation [Recovered/Resolved]
  - Hypoaesthesia [Unknown]
  - Neutropenia [Not Recovered/Not Resolved]
  - Liver function test abnormal [Recovering/Resolving]
  - Dysgeusia [Unknown]
